FAERS Safety Report 17307950 (Version 2)
Quarter: 2020Q1

REPORT INFORMATION
  Report Type: Spontaneous
  Country: TR (occurrence: TR)
  Receive Date: 20200123
  Receipt Date: 20200210
  Transmission Date: 20200409
  Serious: Yes (Other)
  Sender: FDA-Public Use
  Company Number: TR-ABBVIE-20K-161-3246577-00

PATIENT
  Age: 74 Year
  Sex: Male
  Weight: 100 kg

DRUGS (7)
  1. PREDNOL [Concomitant]
     Indication: PRODUCT USED FOR UNKNOWN INDICATION
  2. SALAZOPRIN [Concomitant]
     Indication: PRODUCT USED FOR UNKNOWN INDICATION
  3. ARAVA [Concomitant]
     Active Substance: LEFLUNOMIDE
     Indication: PRODUCT USED FOR UNKNOWN INDICATION
  4. ISONIASID [Concomitant]
     Active Substance: ISONIAZID
     Indication: PRODUCT USED FOR UNKNOWN INDICATION
     Dates: end: 202001
  5. CO DIOVAN [Concomitant]
     Active Substance: HYDROCHLOROTHIAZIDE\VALSARTAN
     Indication: PRODUCT USED FOR UNKNOWN INDICATION
  6. XARELTO [Concomitant]
     Active Substance: RIVAROXABAN
     Indication: PRODUCT USED FOR UNKNOWN INDICATION
  7. HUMIRA [Suspect]
     Active Substance: ADALIMUMAB
     Indication: RHEUMATOID ARTHRITIS
     Route: 058
     Dates: start: 202001, end: 202001

REACTIONS (3)
  - Pruritus [Recovering/Resolving]
  - Hypersensitivity [Recovering/Resolving]
  - Rash [Recovering/Resolving]

NARRATIVE: CASE EVENT DATE: 202001
